FAERS Safety Report 7044008-9 (Version None)
Quarter: 2010Q4

REPORT INFORMATION
  Report Type: 
  Country: None (occurrence: None)
  Receive Date: 20101013
  Receipt Date: 20100511
  Transmission Date: 20110411
  Serious: No
  Sender: FDA-Public Use
  Company Number: US-AMGEN-KDL412069

PATIENT
  Sex: Male
  Weight: 81.7 kg

DRUGS (2)
  1. VECTIBIX [Suspect]
     Indication: COLORECTAL CANCER
     Dates: start: 20090401
  2. XELODA [Concomitant]

REACTIONS (1)
  - ASCITES [None]
